FAERS Safety Report 8175801-7 (Version None)
Quarter: 2012Q1

REPORT INFORMATION
  Report Type: 
  Country: None (occurrence: None)
  Receive Date: 20120228
  Receipt Date: 20120228
  Transmission Date: 20120608
  Serious: Yes (Hospitalization)
  Sender: FDA-Public Use
  Company Number: None

PATIENT
  Age: 56 Year
  Sex: Male
  Weight: 70.2 kg

DRUGS (7)
  1. BORTEZOMIB [Suspect]
     Indication: B-CELL LYMPHOMA
     Dosage: 1.6 MG/M2, WEEKLY, IV
     Route: 042
     Dates: start: 20111202, end: 20120217
  2. NEUPOGEN [Concomitant]
  3. CRESTOR [Concomitant]
  4. CIPRO [Concomitant]
  5. TEMSIROLIMUS [Suspect]
     Indication: B-CELL LYMPHOMA
     Dosage: 25 MG, WEEKLY, IV
     Route: 042
     Dates: start: 20111202, end: 20120217
  6. NIASPAN [Concomitant]
  7. ZOVIRAX [Concomitant]

REACTIONS (2)
  - NUCLEAR MAGNETIC RESONANCE IMAGING BRAIN ABNORMAL [None]
  - VIITH NERVE PARALYSIS [None]
